FAERS Safety Report 8770622 (Version 2)
Quarter: 2013Q1

REPORT INFORMATION
  Report Type: Report from Study
  Country: DE (occurrence: DE)
  Receive Date: 20120906
  Receipt Date: 20130207
  Transmission Date: 20140127
  Serious: Yes (Hospitalization)
  Sender: FDA-Public Use
  Company Number: DE-ROCHE-1113134

PATIENT
  Age: 17 Year
  Sex: Female
  Weight: 64.5 kg

DRUGS (8)
  1. VALGANCICLOVIR [Suspect]
     Indication: ANTIVIRAL PROPHYLAXIS
     Route: 065
     Dates: end: 20111212
  2. VALGANCICLOVIR [Suspect]
     Route: 065
     Dates: start: 20120301
  3. MYCOPHENOLATE MOFETIL [Suspect]
     Indication: PRODUCT USED FOR UNKNOWN INDICATION
     Dosage: LAST DOSE PRIOR TO SAE:25/FEB/2012
     Route: 048
     Dates: start: 20110911
  4. METHYLPREDNISOLONE [Suspect]
     Indication: PROPHYLAXIS AGAINST TRANSPLANT REJECTION
     Dosage: LAST DOSE PRIOR TO SAE:25/FEB/2012
     Route: 048
     Dates: start: 20110913
  5. TACROLIMUS [Suspect]
     Indication: PROPHYLAXIS AGAINST TRANSPLANT REJECTION
     Dosage: LAST DOSE PRIOR TO SAE:25/FEB/2012
     Route: 048
     Dates: start: 20110911
  6. VIGANTOLETTEN [Concomitant]
     Indication: SECONDARY HYPERTHYROIDISM
     Route: 048
     Dates: start: 20111007
  7. VIGANTOLETTEN [Concomitant]
     Dosage: LAST DOSE PRIOR TO SAE: 25/FEB/2012
     Route: 048
     Dates: start: 20111021
  8. FUROSEMID RETARD [Concomitant]
     Indication: HYPERTENSION
     Dosage: LAST DOSE PRIOR TO SAE:25/FEB/2012
     Route: 048
     Dates: start: 20111021

REACTIONS (2)
  - Cytomegalovirus infection [Recovered/Resolved]
  - Kidney transplant rejection [Recovered/Resolved]
